FAERS Safety Report 18553870 (Version 1)
Quarter: 2020Q4

REPORT INFORMATION
  Report Type: Spontaneous
  Country: BR (occurrence: BR)
  Receive Date: 20201127
  Receipt Date: 20201127
  Transmission Date: 20210114
  Serious: Yes (Other)
  Sender: FDA-Public Use
  Company Number: NVSC2020BR312320

PATIENT
  Age: 61 Year
  Sex: Female

DRUGS (10)
  1. RIBOCICLIB. [Suspect]
     Active Substance: RIBOCICLIB
     Indication: BREAST CANCER METASTATIC
     Dosage: 600 MG, QMO (D1 TO D21, EVERY 28 DAYS)
     Route: 065
     Dates: start: 20181025
  2. RIBOCICLIB. [Suspect]
     Active Substance: RIBOCICLIB
     Dosage: UNK
     Route: 065
     Dates: start: 20190405
  3. RIBOCICLIB. [Suspect]
     Active Substance: RIBOCICLIB
     Dosage: 400 MG, QD
     Route: 065
     Dates: start: 201912
  4. RIBOCICLIB. [Suspect]
     Active Substance: RIBOCICLIB
     Dosage: 400 MG, QD (MAINTAINANCE DOSE)
     Route: 065
     Dates: start: 20190124
  5. RIBOCICLIB. [Suspect]
     Active Substance: RIBOCICLIB
     Dosage: UNK UNK, QMO (28 DAYS)
     Route: 065
  6. RIBOCICLIB. [Suspect]
     Active Substance: RIBOCICLIB
     Dosage: 1 DF, QMO (1 TABLET/DAY FOR 21 DAYS, EVERY 28 DAYS)
     Route: 065
  7. FEMARA [Suspect]
     Active Substance: LETROZOLE
     Indication: BREAST CANCER METASTATIC
     Dosage: 2.5 MG (CONTINUOUS)
     Route: 065
     Dates: start: 20181025
  8. RIBOCICLIB. [Suspect]
     Active Substance: RIBOCICLIB
     Dosage: 600 MG, CYCLIC (CYCLE 2)
     Route: 065
     Dates: start: 20181121
  9. RIBOCICLIB. [Suspect]
     Active Substance: RIBOCICLIB
     Dosage: 400 MG, QD
     Route: 065
     Dates: start: 201912
  10. XGEVA [Suspect]
     Active Substance: DENOSUMAB
     Indication: BREAST CANCER METASTATIC
     Dosage: UNK UNK, QMO
     Route: 065
     Dates: start: 20181025

REACTIONS (7)
  - Neutropenia [Unknown]
  - White blood cell count decreased [Recovering/Resolving]
  - Fatigue [Not Recovered/Not Resolved]
  - Product administration error [Unknown]
  - Haemoglobin decreased [Unknown]
  - Lacrimation increased [Not Recovered/Not Resolved]
  - Electrocardiogram QT prolonged [Unknown]

NARRATIVE: CASE EVENT DATE: 20190327
